FAERS Safety Report 7743018-3 (Version None)
Quarter: 2011Q3

REPORT INFORMATION
  Report Type: 
  Country: None (occurrence: None)
  Receive Date: 20110912
  Receipt Date: 20110906
  Transmission Date: 20111222
  Serious: Yes (Hospitalization)
  Sender: FDA-Public Use
  Company Number: US-SANOFI-AVENTIS-2011SA058609

PATIENT
  Sex: Male

DRUGS (1)
  1. RILUTEK [Suspect]
     Route: 065

REACTIONS (1)
  - PNEUMONIA ASPIRATION [None]
